FAERS Safety Report 6277707-7 (Version None)
Quarter: 2009Q3

REPORT INFORMATION
  Report Type: 
  Country: None (occurrence: None)
  Receive Date: 20090722
  Receipt Date: 20090714
  Transmission Date: 20100115
  Serious: Yes (Hospitalization)
  Sender: FDA-Public Use
  Company Number: A0796883A

PATIENT
  Age: 66 Year
  Sex: Female

DRUGS (4)
  1. ADVAIR HFA [Suspect]
     Indication: ASTHMA
     Dosage: 2PUFF TWICE PER DAY
     Route: 055
     Dates: end: 20090101
  2. ACCOLATE [Concomitant]
  3. AVAPRO [Concomitant]
  4. ALBUTEROL [Concomitant]

REACTIONS (5)
  - DYSPNOEA [None]
  - OVERDOSE [None]
  - PEAK EXPIRATORY FLOW RATE DECREASED [None]
  - PULMONARY OEDEMA [None]
  - SUFFOCATION FEELING [None]
